FAERS Safety Report 5120771-9 (Version None)
Quarter: 2006Q4

REPORT INFORMATION
  Report Type: 
  Country: None (occurrence: None)
  Receive Date: 20061003
  Receipt Date: 20061003
  Transmission Date: 20070319
  Serious: Yes (Life-Threatening, Hospitalization)
  Sender: FDA-Public Use
  Company Number: None

PATIENT
  Age: 59 Year
  Sex: Male

DRUGS (1)
  1. OMNIPAQUE 240 [Suspect]

REACTIONS (8)
  - CONVULSION [None]
  - DISORIENTATION [None]
  - FEELING ABNORMAL [None]
  - JAW DISORDER [None]
  - MENTAL DISORDER [None]
  - MUSCLE RIGIDITY [None]
  - PHOTOPSIA [None]
  - TREMOR [None]
